FAERS Safety Report 7657029-X (Version None)
Quarter: 2011Q3

REPORT INFORMATION
  Report Type: 
  Country: None (occurrence: None)
  Receive Date: 20110804
  Receipt Date: 20110802
  Transmission Date: 20111222
  Serious: Yes (Life-Threatening, Hospitalization)
  Sender: FDA-Public Use
  Company Number: ES-BAYER-2011-067810

PATIENT
  Age: 49 Year
  Sex: Female

DRUGS (1)
  1. ULTRAVIST 150 [Suspect]
     Indication: ASCITES
     Dosage: 100 ML, ONCE
     Dates: start: 20110726, end: 20110726

REACTIONS (2)
  - BRAIN HYPOXIA [None]
  - RESPIRATORY ARREST [None]
